FAERS Safety Report 4463066-9 (Version None)
Quarter: 2004Q3

REPORT INFORMATION
  Report Type: 
  Country: None (occurrence: None)
  Receive Date: 20040930
  Receipt Date: 20040726
  Transmission Date: 20050211
  Serious: Yes (Other)
  Sender: FDA-Public Use
  Company Number: PHFR2004GB02959

PATIENT
  Age: 34 Year
  Sex: Female

DRUGS (8)
  1. TEGRETOL [Suspect]
     Indication: AFFECTIVE DISORDER
     Route: 048
  2. PROCYCLIDINE HYDROCHLORIDE 2MG TAB [Concomitant]
     Dosage: 5 MG, BID
     Route: 048
  3. ZOLPIDEM TARTRATE [Concomitant]
     Dosage: 20 MG, QD
     Route: 048
  4. OLANZAPINE [Concomitant]
     Dosage: 10 MG, QD
     Route: 048
  5. DEPAKOTE [Concomitant]
     Dosage: 500 MG, TID
     Route: 048
  6. CLONAZEPAM [Concomitant]
     Dosage: 2 MG, PRN
     Route: 048
  7. DEPIXOL [Concomitant]
     Dosage: 150 MG, QW2
     Route: 030
  8. TRAMADOL HCL [Concomitant]
     Dosage: 50 MG, PRN
     Route: 048

REACTIONS (2)
  - ANKLE FRACTURE [None]
  - DEEP VEIN THROMBOSIS [None]
